FAERS Safety Report 5216428-6 (Version None)
Quarter: 2007Q1

REPORT INFORMATION
  Report Type: 
  Country: None (occurrence: None)
  Receive Date: 20070118
  Receipt Date: 20070112
  Transmission Date: 20070707
  Serious: Yes (Death)
  Sender: FDA-Public Use
  Company Number: 235014

PATIENT
  Age: 72 Year
  Sex: Male

DRUGS (1)
  1. RANIBIZUMAB  (RANIBIZUMAB) PWDR + SOLVENT, INJECTION  SOLN [Suspect]
     Indication: MACULAR DEGENERATION
     Dosage: INTRAVITREAL
     Dates: start: 20060214

REACTIONS (1)
  - DEATH [None]
